FAERS Safety Report 8579716-1 (Version None)
Quarter: 2012Q3

REPORT INFORMATION
  Report Type: 
  Country: None (occurrence: None)
  Receive Date: 20120808
  Receipt Date: 20120731
  Transmission Date: 20120928
  Serious: Yes (Hospitalization)
  Sender: FDA-Public Use
  Company Number: JP-VERTEX PHARMACEUTICALS INC.-AE-2012-011500

PATIENT
  Age: 64 Year
  Sex: Male

DRUGS (9)
  1. RINDERON-V [Concomitant]
     Route: 051
     Dates: start: 20120531, end: 20120603
  2. TELAVIC (TELAPREVIR) [Suspect]
     Indication: HEPATITIS C
     Route: 048
     Dates: start: 20120523, end: 20120525
  3. TELAVIC (TELAPREVIR) [Suspect]
     Route: 048
     Dates: start: 20120605
  4. RIBAVIRIN [Concomitant]
     Route: 048
     Dates: start: 20120615
  5. PEGINTERFERON ALFA-2B [Concomitant]
     Indication: HEPATITIS C
     Route: 058
     Dates: start: 20120523
  6. RIBAVIRIN [Concomitant]
     Indication: HEPATITIS C
     Route: 048
     Dates: start: 20120523, end: 20120604
  7. RIBAVIRIN [Concomitant]
     Route: 048
     Dates: start: 20120612, end: 20120614
  8. LACTEC [Concomitant]
     Dates: start: 20120525, end: 20120527
  9. RIBAVIRIN [Concomitant]
     Route: 048
     Dates: start: 20120605, end: 20120611

REACTIONS (2)
  - RENAL IMPAIRMENT [None]
  - HAEMOGLOBIN DECREASED [None]
